FAERS Safety Report 4374223-4 (Version None)
Quarter: 2004Q2

REPORT INFORMATION
  Report Type: 
  Country: None (occurrence: None)
  Receive Date: 20040609
  Receipt Date: 20040602
  Transmission Date: 20050107
  Serious: Yes (Other)
  Sender: FDA-Public Use
  Company Number: US-JNJFOC-20040601316

PATIENT
  Sex: Female
  Weight: 77.11 kg

DRUGS (24)
  1. LEVAQUIN [Suspect]
  2. PREDNISONE [Concomitant]
  3. LASIX [Concomitant]
  4. KCL TAB [Concomitant]
  5. PREMARIN [Concomitant]
  6. PRINIVIL [Concomitant]
  7. PROZAC [Concomitant]
  8. DESERYL [Concomitant]
  9. CELEBREX [Concomitant]
  10. FLEXERIL [Concomitant]
  11. METHADONE HCL [Concomitant]
  12. GUEFINEX [Concomitant]
  13. FIORINAL [Concomitant]
  14. FIORINAL [Concomitant]
  15. FIORINAL [Concomitant]
  16. ADVAIR DISKUS 100/50 [Concomitant]
  17. ADVAIR DISKUS 100/50 [Concomitant]
  18. NASACORT [Concomitant]
  19. PREVENTIL [Concomitant]
  20. ZANTAC [Concomitant]
  21. SINGULAIR [Concomitant]
  22. ENTEX CAP [Concomitant]
  23. ENTEX CAP [Concomitant]
  24. MYCELEX [Concomitant]

REACTIONS (9)
  - APHASIA [None]
  - ARTHRALGIA [None]
  - BODY TEMPERATURE INCREASED [None]
  - CONFUSIONAL STATE [None]
  - HYPOAESTHESIA ORAL [None]
  - JOINT SWELLING [None]
  - MEMORY IMPAIRMENT [None]
  - OEDEMA PERIPHERAL [None]
  - PAIN IN EXTREMITY [None]
